FAERS Safety Report 13735540 (Version 3)
Quarter: 2017Q3

REPORT INFORMATION
  Report Type: Spontaneous
  Country: US (occurrence: US)
  Receive Date: 20170710
  Receipt Date: 20170825
  Transmission Date: 20171127
  Serious: No
  Sender: FDA-Public Use
  Company Number: US-PFIZER INC-2017297700

PATIENT
  Age: 31 Year
  Sex: Female
  Weight: 104.3 kg

DRUGS (3)
  1. ADDERALL [Concomitant]
     Active Substance: AMPHETAMINE ASPARTATE\AMPHETAMINE SULFATE\DEXTROAMPHETAMINE SACCHARATE\DEXTROAMPHETAMINE SULFATE
     Indication: ATTENTION DEFICIT/HYPERACTIVITY DISORDER
     Dosage: 20 MG, 2X/DAY
  2. CHANTIX [Suspect]
     Active Substance: VARENICLINE TARTRATE
     Indication: SMOKING CESSATION THERAPY
     Dosage: 1 MG, DAILY
     Route: 048
     Dates: start: 20170417
  3. CHANTIX [Suspect]
     Active Substance: VARENICLINE TARTRATE
     Dosage: 2 DF, 2X/DAY (TWO TABLETS, ORALLY, TWICE A DAY)
     Route: 048

REACTIONS (1)
  - Drug screen false positive [Unknown]

NARRATIVE: CASE EVENT DATE: 20170614
